FAERS Safety Report 21111477 (Version 2)
Quarter: 2022Q3

REPORT INFORMATION
  Report Type: Spontaneous
  Country: US (occurrence: US)
  Receive Date: 20220721
  Receipt Date: 20220722
  Transmission Date: 20221027
  Serious: No
  Sender: FDA-Public Use
  Company Number: US-PFIZER INC-202200979975

PATIENT
  Age: 59 Year
  Sex: Male

DRUGS (1)
  1. PAXLOVID [Suspect]
     Active Substance: NIRMATRELVIR\RITONAVIR
     Indication: COVID-19 treatment
     Dosage: UNK

REACTIONS (8)
  - Dysgeusia [Unknown]
  - Nausea [Unknown]
  - Retching [Unknown]
  - Pyrexia [Not Recovered/Not Resolved]
  - Sleep disorder [Unknown]
  - Dizziness [Unknown]
  - Abdominal pain upper [Unknown]
  - Decreased appetite [Unknown]
